FAERS Safety Report 5225206-3 (Version None)
Quarter: 2007Q1

REPORT INFORMATION
  Report Type: 
  Country: None (occurrence: None)
  Receive Date: 20070131
  Receipt Date: 20070122
  Transmission Date: 20070707
  Serious: Yes (Other)
  Sender: FDA-Public Use
  Company Number: US-JNJFOC-20070106150

PATIENT
  Sex: Male
  Weight: 53.52 kg

DRUGS (6)
  1. FENTANYL TRANSDERMAL SYSTEM [Suspect]
     Indication: PAIN
     Route: 062
  2. IBUPROFEN [Suspect]
     Indication: DRUG USE FOR UNKNOWN INDICATION
     Route: 048
  3. CYMBALTA [Concomitant]
     Indication: BIPOLAR DISORDER
     Route: 048
  4. DEPAKOTE [Concomitant]
     Indication: DRUG THERAPY
     Route: 048
  5. VICOPROFEN [Concomitant]
     Indication: PAIN
     Route: 048
  6. VICODIN [Concomitant]
     Route: 065

REACTIONS (1)
  - INTESTINAL HAEMORRHAGE [None]
